FAERS Safety Report 18893998 (Version 1)
Quarter: 2021Q1

REPORT INFORMATION
  Report Type: Other
  Country: US (occurrence: US)
  Receive Date: 20210215
  Receipt Date: 20210215
  Transmission Date: 20210420
  Serious: Yes (Congenital Anomaly, Other)
  Sender: FDA-Public Use
  Company Number: US-ROCHE-2769905

PATIENT

DRUGS (3)
  1. RITUXIMAB. [Suspect]
     Active Substance: RITUXIMAB
     Indication: PRODUCT USED FOR UNKNOWN INDICATION
     Route: 064
  2. OXYCODONE [Suspect]
     Active Substance: OXYCODONE
     Indication: PRODUCT USED FOR UNKNOWN INDICATION
     Route: 064
  3. SERTRALINE [Suspect]
     Active Substance: SERTRALINE HYDROCHLORIDE
     Indication: PRODUCT USED FOR UNKNOWN INDICATION
     Route: 064

REACTIONS (16)
  - Respiratory acidosis [Unknown]
  - Congenital hair disorder [Unknown]
  - Drug withdrawal syndrome neonatal [Unknown]
  - Foetal exposure during pregnancy [Unknown]
  - Dental alveolar anomaly [Unknown]
  - Meconium aspiration syndrome [Unknown]
  - Cyanosis [Unknown]
  - Micrognathia [Unknown]
  - Congenital oral malformation [Unknown]
  - Jaundice neonatal [Unknown]
  - Thrombocytopenia [Recovered/Resolved]
  - Congenital nose malformation [Unknown]
  - Clinodactyly [Unknown]
  - Pulmonary hypertension [Recovered/Resolved]
  - Benign congenital hypotonia [Unknown]
  - Hypotonia [Unknown]
